FAERS Safety Report 8941702 (Version 3)
Quarter: 2013Q1

REPORT INFORMATION
  Report Type: Spontaneous
  Country: IT (occurrence: IT)
  Receive Date: 20121203
  Receipt Date: 20130311
  Transmission Date: 20140127
  Serious: Yes (Other)
  Sender: FDA-Public Use
  Company Number: IT-BRISTOL-MYERS SQUIBB COMPANY-17148446

PATIENT
  Age: 57 Year
  Sex: Female

DRUGS (7)
  1. COUMADIN TABS 5 MG [Suspect]
     Indication: ATRIAL FIBRILLATION
     Route: 048
     Dates: start: 20120101, end: 20120926
  2. CONTRAMAL [Interacting]
     Indication: ANALGESIC THERAPY
     Route: 048
     Dates: start: 20120925, end: 20120925
  3. LASIX [Concomitant]
     Dosage: TABS
  4. CONCOR [Concomitant]
     Dosage: TAB
  5. VALPRESSION [Concomitant]
     Indication: HYPERTENSION
     Dosage: TABS
  6. ARCOXIA [Concomitant]
     Indication: ARTHRALGIA
  7. PLASIL [Concomitant]

REACTIONS (6)
  - Epistaxis [Recovering/Resolving]
  - Arthralgia [Unknown]
  - Vomiting [Recovering/Resolving]
  - Diarrhoea [Recovering/Resolving]
  - Vertigo positional [Recovering/Resolving]
  - Drug interaction [Unknown]
